FAERS Safety Report 14770337 (Version 1)
Quarter: 2018Q2

REPORT INFORMATION
  Report Type: Spontaneous
  Country: US (occurrence: US)
  Receive Date: 20180411
  Receipt Date: 20180411
  Transmission Date: 20180711
  Serious: Yes (Other)
  Sender: FDA-Public Use
  Company Number: None

PATIENT
  Age: 51 Year
  Sex: Female
  Weight: 81 kg

DRUGS (15)
  1. BUPROPION XL [Suspect]
     Active Substance: BUPROPION
     Indication: ANXIETY
  2. MORPHINE ER [Concomitant]
     Active Substance: MORPHINE
  3. BOTOX [Concomitant]
     Active Substance: ONABOTULINUMTOXINA
  4. NATUREMADE WOMEN^S MULTI-VITAMIN [Concomitant]
  5. BIOTIN [Concomitant]
     Active Substance: BIOTIN
  6. LORAZEPAM. [Concomitant]
     Active Substance: LORAZEPAM
  7. ZOMIG NS [Concomitant]
  8. MIGRE-LIEF (FEVERFEW, MAGNESIUM, RIBOFLAVIN) [Concomitant]
  9. MICROGESTIN [Concomitant]
     Active Substance: ETHINYL ESTRADIOL\NORETHINDRONE ACETATE
  10. EXEDRIN [Concomitant]
  11. BUPROPION XL [Suspect]
     Active Substance: BUPROPION
     Indication: DEPRESSION
     Dosage: ?          QUANTITY:60 TABLET(S);?
     Route: 048
     Dates: start: 20171020, end: 20180411
  12. OXYCODONE [Concomitant]
     Active Substance: OXYCODONE
  13. GENERIC ZOLMATRIPTAN [Concomitant]
  14. RETIN-A MICRO [Concomitant]
     Active Substance: TRETINOIN
  15. GENERIC RENOVA [Concomitant]

REACTIONS (11)
  - Rash [None]
  - Palpitations [None]
  - Feeling abnormal [None]
  - Rash erythematous [None]
  - Burning sensation [None]
  - Paraesthesia [None]
  - Urticaria [None]
  - Neuralgia [None]
  - Tremor [None]
  - Drug ineffective [None]
  - Product substitution issue [None]

NARRATIVE: CASE EVENT DATE: 20180411
